FAERS Safety Report 4332576-7 (Version None)
Quarter: 2004Q1

REPORT INFORMATION
  Report Type: 
  Country: None (occurrence: None)
  Receive Date: 20040330
  Receipt Date: 20040319
  Transmission Date: 20041129
  Serious: Yes (Hospitalization)
  Sender: FDA-Public Use
  Company Number: DE-JNJFOC-20040304657

PATIENT
  Age: 19 Year
  Sex: Female
  Weight: 91 kg

DRUGS (1)
  1. CILEST (NORGESTIMATE/ETHINYL ESTRADIOL) TABLETS [Suspect]
     Indication: CONTRACEPTION
     Dosage: 1 DOSE (S), 1 IN 1 DAY, ORAL
     Route: 048
     Dates: start: 20000101, end: 20031126

REACTIONS (6)
  - COAGULATION FACTOR V LEVEL INCREASED [None]
  - INFLAMMATION [None]
  - LUNG INFILTRATION [None]
  - PROTEIN C DECREASED [None]
  - PULMONARY EMBOLISM [None]
  - THROMBOSIS [None]
